FAERS Safety Report 9877670 (Version 2)
Quarter: 2014Q1

REPORT INFORMATION
  Report Type: Spontaneous
  Country: PL (occurrence: PL)
  Receive Date: 20140206
  Receipt Date: 20140212
  Transmission Date: 20141002
  Serious: Yes (Hospitalization, Other)
  Sender: FDA-Public Use
  Company Number: PHHY2014PL013378

PATIENT
  Age: 81 Year
  Sex: Male
  Weight: 65 kg

DRUGS (6)
  1. GLIVEC [Suspect]
     Indication: CHRONIC MYELOID LEUKAEMIA
     Dosage: 400 MG, QD
     Dates: start: 201007
  2. GLIVEC [Suspect]
     Dosage: 400 MG, QD
  3. MILURIT [Concomitant]
     Indication: CHRONIC MYELOID LEUKAEMIA
     Dosage: 2 U, QD
     Route: 048
     Dates: start: 2010
  4. ACENOCUMAROL [Concomitant]
     Indication: ATRIAL FLUTTER
     Dosage: 3 MG, UNK
     Route: 048
     Dates: start: 2011
  5. FUROMID//FUROSEMIDE [Concomitant]
     Indication: CHRONIC MYELOID LEUKAEMIA
     Dosage: 40 MG, UNK
     Route: 048
     Dates: start: 2010
  6. DALFAZ [Concomitant]
     Indication: BENIGN PROSTATIC HYPERPLASIA
     Dosage: 5 MG, UNK
     Route: 048
     Dates: start: 2010

REACTIONS (3)
  - Ascites [Not Recovered/Not Resolved]
  - Diverticulitis [Unknown]
  - Hepatic fibrosis [Not Recovered/Not Resolved]
